FAERS Safety Report 7687737-6 (Version None)
Quarter: 2011Q3

REPORT INFORMATION
  Report Type: 
  Country: None (occurrence: None)
  Receive Date: 20110817
  Receipt Date: 20110808
  Transmission Date: 20111222
  Serious: Yes (Other)
  Sender: FDA-Public Use
  Company Number: US-CEPHALON-US018943

PATIENT
  Age: 50 Year
  Sex: Female

DRUGS (1)
  1. PROVIGIL [Suspect]
     Indication: SOMNOLENCE
     Route: 048
     Dates: start: 20061104, end: 20061109

REACTIONS (3)
  - HALLUCINATIONS, MIXED [None]
  - DEPERSONALISATION [None]
  - NIGHTMARE [None]
